FAERS Safety Report 19491239 (Version 2)
Quarter: 2021Q3

REPORT INFORMATION
  Report Type: Other
  Country: US (occurrence: US)
  Receive Date: 20210705
  Receipt Date: 20210713
  Transmission Date: 20211014
  Serious: Yes (Other)
  Sender: FDA-Public Use
  Company Number: US-ROCHE-2860895

PATIENT
  Age: 75 Year
  Sex: Female
  Weight: 60.6 kg

DRUGS (14)
  1. CELLCEPT [Suspect]
     Active Substance: MYCOPHENOLATE MOFETIL\MYCOPHENOLATE MOFETIL HYDROCHLORIDE
     Indication: RENAL TRANSPLANT
     Dosage: 2 PO AM, 1 PO PM
     Route: 048
  2. CALCITRIOL. [Concomitant]
     Active Substance: CALCITRIOL
  3. MAGNESIUM [Concomitant]
     Active Substance: MAGNESIUM
  4. METOPROLOL TARTRATE. [Concomitant]
     Active Substance: METOPROLOL TARTRATE
     Route: 048
  5. PROGRAF [Concomitant]
     Active Substance: TACROLIMUS
     Dosage: OTHER DOSAGE : 1 MG
  6. GLIMEPIRIDE. [Concomitant]
     Active Substance: GLIMEPIRIDE
     Route: 048
  7. ISOSORBIDE MONONITRATE. [Concomitant]
     Active Substance: ISOSORBIDE MONONITRATE
     Route: 048
  8. AMITRIPTYLLINE [Concomitant]
     Active Substance: AMITRIPTYLINE
     Route: 048
  9. ASPIR 81 [Concomitant]
     Active Substance: ASPIRIN
     Route: 048
  10. PREDNISONE. [Concomitant]
     Active Substance: PREDNISONE
     Route: 048
  11. ELIQUIS [Concomitant]
     Active Substance: APIXABAN
     Route: 048
  12. COVID?19 VACCINE [Concomitant]
     Dates: start: 20210208
  13. METFORMIN [Concomitant]
     Active Substance: METFORMIN HYDROCHLORIDE
  14. ROSUVASTATIN. [Concomitant]
     Active Substance: ROSUVASTATIN
     Route: 048

REACTIONS (27)
  - Autoimmune disorder [Unknown]
  - Hypomagnesaemia [Unknown]
  - Hypoaesthesia [Unknown]
  - Palpitations [Unknown]
  - Blood triglycerides increased [Unknown]
  - Epistaxis [Unknown]
  - Hyperlipidaemia [Unknown]
  - Off label use [Unknown]
  - Hyperparathyroidism secondary [Unknown]
  - Sciatica [Unknown]
  - Peripheral swelling [Unknown]
  - Morton^s neuralgia [Unknown]
  - Dizziness [Unknown]
  - Type 2 diabetes mellitus [Unknown]
  - Lip neoplasm [Unknown]
  - Cardiac valve disease [Unknown]
  - Plantar fasciitis [Unknown]
  - Snoring [Unknown]
  - Vitamin D deficiency [Unknown]
  - Hypercholesterolaemia [Unknown]
  - Arteriosclerosis coronary artery [Unknown]
  - Bone density decreased [Unknown]
  - Dyspnoea exertional [Unknown]
  - Heart valve stenosis [Unknown]
  - Tachycardia [Unknown]
  - Arthralgia [Unknown]
  - Chest discomfort [Unknown]

NARRATIVE: CASE EVENT DATE: 20081224
